FAERS Safety Report 6943528-2 (Version None)
Quarter: 2010Q3

REPORT INFORMATION
  Report Type: 
  Country: None (occurrence: None)
  Receive Date: 20100825
  Receipt Date: 20100825
  Transmission Date: 20110219
  Serious: Yes (Death, Hospitalization)
  Sender: FDA-Public Use
  Company Number: None

PATIENT
  Sex: Male
  Weight: 95.7 kg

DRUGS (1)
  1. ALIMTA [Suspect]
     Dosage: 1100 MG
     Dates: end: 20100719

REACTIONS (7)
  - CHRONIC OBSTRUCTIVE PULMONARY DISEASE [None]
  - CONDITION AGGRAVATED [None]
  - HYPOTENSION [None]
  - OROPHARYNGEAL CANDIDIASIS [None]
  - PNEUMONIA [None]
  - RENAL FAILURE [None]
  - TACHYCARDIA [None]
